FAERS Safety Report 9969081 (Version 1)
Quarter: 2014Q1

REPORT INFORMATION
  Report Type: Report from Study
  Country: US (occurrence: US)
  Receive Date: 20140306
  Receipt Date: 20140306
  Transmission Date: 20141002
  Serious: No
  Sender: FDA-Public Use
  Company Number: US-ABBVIE-13P-163-1141838-00

PATIENT
  Age: 48 Year
  Sex: Male

DRUGS (8)
  1. HUMIRA [Suspect]
     Indication: PSORIASIS
     Dates: start: 201306, end: 201308
  2. BACLOFEN [Concomitant]
     Indication: MUSCLE RELAXANT THERAPY
  3. NORTRIPTYLINE [Concomitant]
     Indication: INSOMNIA
     Dosage: 75 MG DAY
  4. NORTRIPTYLINE [Concomitant]
     Indication: AFFECTIVE DISORDER
  5. GABAPENTIN [Concomitant]
     Indication: NEURALGIA
  6. METHYLPHENIDATE [Concomitant]
     Indication: ATTENTION DEFICIT/HYPERACTIVITY DISORDER
     Dosage: 30 MG A DAY
  7. METHYLPHENIDATE [Concomitant]
     Indication: BIPOLAR DISORDER
  8. HYDROXYZINE [Concomitant]
     Indication: INSOMNIA
     Dosage: AT NIGHT

REACTIONS (6)
  - Flushing [Not Recovered/Not Resolved]
  - Arthralgia [Not Recovered/Not Resolved]
  - Joint warmth [Not Recovered/Not Resolved]
  - Pain [Not Recovered/Not Resolved]
  - Erythema multiforme [Not Recovered/Not Resolved]
  - Rash pruritic [Not Recovered/Not Resolved]
